FAERS Safety Report 9616911 (Version 1)
Quarter: 2013Q4

REPORT INFORMATION
  Report Type: Spontaneous
  Country: US (occurrence: US)
  Receive Date: 20131011
  Receipt Date: 20131011
  Transmission Date: 20140711
  Serious: No
  Sender: FDA-Public Use
  Company Number: US-PFIZER INC-2013288294

PATIENT
  Age: 79 Year
  Sex: Female
  Weight: 56.69 kg

DRUGS (2)
  1. ADVIL [Suspect]
     Indication: PAIN
     Dosage: 200 MG, ONCE A DAY
     Route: 048
     Dates: start: 201309
  2. ECOTRIN [Concomitant]
     Indication: CARDIAC DISORDER
     Dosage: 81 MG, UNK

REACTIONS (2)
  - Pre-existing condition improved [Unknown]
  - Therapeutic response unexpected [Unknown]
